FAERS Safety Report 14335160 (Version 2)
Quarter: 2018Q2

REPORT INFORMATION
  Report Type: Spontaneous
  Country: NI (occurrence: NI)
  Receive Date: 20171229
  Receipt Date: 20180510
  Transmission Date: 20180711
  Serious: Yes (Hospitalization)
  Sender: FDA-Public Use
  Company Number: NI-BRISTOL-MYERS SQUIBB COMPANY-BMS-2017-101261

PATIENT
  Sex: Male

DRUGS (1)
  1. SPRYCEL [Suspect]
     Active Substance: DASATINIB
     Indication: CHRONIC MYELOID LEUKAEMIA
     Dosage: 100 MG, UNK
     Route: 065

REACTIONS (1)
  - White blood cell count increased [Unknown]
